FAERS Safety Report 6184664-0 (Version None)
Quarter: 2009Q2

REPORT INFORMATION
  Report Type: 
  Country: None (occurrence: None)
  Receive Date: 20090508
  Receipt Date: 20090506
  Transmission Date: 20091009
  Serious: Yes (Hospitalization)
  Sender: FDA-Public Use
  Company Number: FR-BRISTOL-MYERS SQUIBB COMPANY-14614168

PATIENT
  Age: 92 Year
  Sex: Female

DRUGS (4)
  1. PRAVADUAL TABS 81 MG/40 MG [Suspect]
     Indication: MYOCARDIAL INFARCTION
     Dosage: 1DF = PRAVASTATIN 40MG + ACETYLSALICYLIC ACID 81MG
  2. PRAVADUAL TABS 81 MG/40 MG [Suspect]
     Indication: CARDIAC FAILURE
     Dosage: 1DF = PRAVASTATIN 40MG + ACETYLSALICYLIC ACID 81MG
  3. PLAVIX [Concomitant]
     Indication: MYOCARDIAL INFARCTION
  4. PLAVIX [Concomitant]
     Indication: CARDIAC FAILURE

REACTIONS (2)
  - MYOCARDIAL INFARCTION [None]
  - THROMBOSIS [None]
